FAERS Safety Report 6484868-3 (Version None)
Quarter: 2009Q4

REPORT INFORMATION
  Report Type: 
  Country: None (occurrence: None)
  Receive Date: 20091203
  Receipt Date: 20091118
  Transmission Date: 20100525
  Serious: Yes (Hospitalization)
  Sender: FDA-Public Use
  Company Number: 2008002987

PATIENT
  Age: 63 Year
  Sex: Male
  Weight: 94 kg

DRUGS (6)
  1. ERLOTINIB HYDROCHLORIDE [Suspect]
     Indication: NON-SMALL CELL LUNG CANCER
     Dosage: (150 MG,QD),ORAL; (100 MG,QD), ORAL
     Route: 048
     Dates: start: 20080910, end: 20080924
  2. ERLOTINIB HYDROCHLORIDE [Suspect]
     Indication: NON-SMALL CELL LUNG CANCER
     Dosage: (150 MG,QD),ORAL; (100 MG,QD), ORAL
     Route: 048
     Dates: start: 20080423
  3. SUNITINIB/PLACEBO [Suspect]
     Indication: NON-SMALL CELL LUNG CANCER
     Dosage: (37.5 MG,QD),ORAL
     Route: 048
     Dates: start: 20080423, end: 20080924
  4. LORATADINE [Concomitant]
  5. ALGIFEN (DONAGAN) [Concomitant]
  6. REASEC (LOMOTIL) [Concomitant]

REACTIONS (5)
  - ANAEMIA [None]
  - ASTHENIA [None]
  - MUCOSAL HAEMORRHAGE [None]
  - PLATELET COUNT DECREASED [None]
  - WHITE BLOOD CELL COUNT DECREASED [None]
